FAERS Safety Report 20822596 (Version 2)
Quarter: 2022Q2

REPORT INFORMATION
  Report Type: Spontaneous
  Country: GB (occurrence: GB)
  Receive Date: 20220512
  Receipt Date: 20220516
  Transmission Date: 20220720
  Serious: Yes (Hospitalization)
  Sender: FDA-Public Use
  Company Number: GB-MYLANLABS-2022M1033792

PATIENT
  Sex: Female

DRUGS (1)
  1. CLOZARIL [Suspect]
     Active Substance: CLOZAPINE
     Indication: Schizophrenia
     Dosage: 275 MILLIGRAM, QD, 125MG IN MORNING + 150MG AT TEATIME
     Route: 048
     Dates: start: 20190423

REACTIONS (13)
  - Suspected COVID-19 [Unknown]
  - Pneumonia [Unknown]
  - C-reactive protein increased [Unknown]
  - N-terminal prohormone brain natriuretic peptide abnormal [Unknown]
  - Blood calcium decreased [Unknown]
  - Protein total decreased [Unknown]
  - Blood albumin decreased [Unknown]
  - Mean cell haemoglobin concentration increased [Unknown]
  - Haematocrit increased [Unknown]
  - Eosinophil count decreased [Unknown]
  - Blood glucose increased [Unknown]
  - Blood urea increased [Unknown]
  - Lymphocyte count decreased [Unknown]

NARRATIVE: CASE EVENT DATE: 20220501
